FAERS Safety Report 25086050 (Version 1)
Quarter: 2025Q1

REPORT INFORMATION
  Report Type: Spontaneous
  Country: GB (occurrence: GB)
  Receive Date: 20250317
  Receipt Date: 20250317
  Transmission Date: 20250409
  Serious: Yes (Other)
  Sender: MERCK SHARP & DOHME LLC
  Company Number: None

PATIENT
  Age: 55 Year
  Sex: Female
  Weight: 76 kg

DRUGS (11)
  1. DORAVIRINE [Suspect]
     Active Substance: DORAVIRINE
     Indication: HIV test positive
     Dosage: 100 MG OD
     Route: 048
     Dates: start: 20241114, end: 20250122
  2. MIRTAZAPINE [Concomitant]
     Active Substance: MIRTAZAPINE
  3. OMEPRAZOLE [Concomitant]
     Active Substance: OMEPRAZOLE
  4. COCODAMOL [Concomitant]
     Active Substance: ACETAMINOPHEN\CODEINE PHOSPHATE
  5. SOLIFENACIN [Concomitant]
     Active Substance: SOLIFENACIN
  6. CALCIUM [Concomitant]
     Active Substance: CALCIUM
  7. GABAPENTIN [Concomitant]
     Active Substance: GABAPENTIN
  8. DESCOVY [Concomitant]
     Active Substance: EMTRICITABINE\TENOFOVIR ALAFENAMIDE FUMARATE
     Indication: HIV infection
     Dates: start: 20241114, end: 20250122
  9. AMITRIPTYLINE [Concomitant]
     Active Substance: AMITRIPTYLINE
  10. MIRABEGRON [Concomitant]
     Active Substance: MIRABEGRON
  11. ALENDRONIC ACID [Concomitant]
     Active Substance: ALENDRONIC ACID

REACTIONS (1)
  - Hypertransaminasaemia [Recovered/Resolved]

NARRATIVE: CASE EVENT DATE: 20250114
